FAERS Safety Report 13327971 (Version 1)
Quarter: 2017Q1

REPORT INFORMATION
  Report Type: Spontaneous
  Country: US (occurrence: US)
  Receive Date: 20170313
  Receipt Date: 20170313
  Transmission Date: 20170428
  Serious: No
  Sender: FDA-Public Use
  Company Number: US-009507513-1703USA000379

PATIENT
  Sex: Female

DRUGS (2)
  1. PROVENTIL [Suspect]
     Active Substance: ALBUTEROL
     Indication: LARYNGITIS
     Dosage: 2 PUFFS BY MOUTH FOUR TIMES A DAY
     Route: 055
     Dates: start: 20170222
  2. AMOXI/CLAV [Concomitant]

REACTIONS (3)
  - Incorrect dosage administered [Unknown]
  - Product quality issue [Unknown]
  - Drug ineffective [Not Recovered/Not Resolved]

NARRATIVE: CASE EVENT DATE: 2017
